FAERS Safety Report 9129446 (Version 2)
Quarter: 2013Q1

REPORT INFORMATION
  Report Type: Spontaneous
  Country: US (occurrence: US)
  Receive Date: 20130228
  Receipt Date: 20130304
  Transmission Date: 20140127
  Serious: Yes (Other)
  Sender: FDA-Public Use
  Company Number: US-PFIZER INC-2013072281

PATIENT
  Sex: Male

DRUGS (3)
  1. LYRICA [Suspect]
     Dosage: 25 MG, UNK
  2. LYRICA [Suspect]
     Dosage: 75 MG, UNK
  3. LYRICA [Suspect]
     Dosage: 25 MG, UNK

REACTIONS (1)
  - Dyspnoea [Unknown]
